FAERS Safety Report 5414021-3 (Version None)
Quarter: 2007Q3

REPORT INFORMATION
  Report Type: 
  Country: None (occurrence: None)
  Receive Date: 20070814
  Receipt Date: 20070731
  Transmission Date: 20080115
  Serious: Yes (Hospitalization)
  Sender: FDA-Public Use
  Company Number: US-ELI_LILLY_AND_COMPANY-US200707007317

PATIENT
  Age: 87 Year
  Sex: Female

DRUGS (6)
  1. HUMALOG MIX 75/25 [Suspect]
     Dosage: 15 U, EACH MORNING
  2. HUMALOG MIX 75/25 [Suspect]
     Dosage: 10 U, EACH EVENING
  3. HUMALOG MIX 75/25 [Suspect]
     Dosage: 15 U, EACH MORNING
  4. HUMALOG MIX 75/25 [Suspect]
     Dosage: 10 U, EACH EVENING
  5. HUMALOG MIX 75/25 [Suspect]
     Dosage: 15 U, EACH MORNING
  6. HUMALOG MIX 75/25 [Suspect]
     Dosage: 10 U, EACH EVENING

REACTIONS (5)
  - FALL [None]
  - GAIT DISTURBANCE [None]
  - HIP FRACTURE [None]
  - LOCAL SWELLING [None]
  - MUSCLE STRAIN [None]
